FAERS Safety Report 17394229 (Version 3)
Quarter: 2020Q1

REPORT INFORMATION
  Report Type: Report from Study
  Country: US (occurrence: US)
  Receive Date: 20200210
  Receipt Date: 20200309
  Transmission Date: 20200409
  Serious: Yes (Hospitalization)
  Sender: FDA-Public Use
  Company Number: US-ROCHE-2535002

PATIENT
  Age: 79 Year
  Sex: Female
  Weight: 51.1 kg

DRUGS (42)
  1. DOCUSATE CALCIUM. [Concomitant]
     Active Substance: DOCUSATE CALCIUM
     Dosage: TAKE 200 MG BY MOUTH TWICE DAILY
     Route: 065
     Dates: start: 20200124
  2. PEPCID [Concomitant]
     Active Substance: FAMOTIDINE
     Dosage: TAKE 1 TABLET (20 MG) BY MOUTH DAILY
     Route: 048
     Dates: start: 20200124
  3. SYNTHROID [Concomitant]
     Active Substance: LEVOTHYROXINE SODIUM
     Dosage: TAKE 25 MCG BY MOUTH DAILY
     Route: 065
     Dates: start: 20200124
  4. MONISTAT [Concomitant]
     Active Substance: MICONAZOLE NITRATE
     Indication: FUNGAL INFECTION
     Route: 065
     Dates: start: 20200122
  5. NORVASC [Concomitant]
     Active Substance: AMLODIPINE BESYLATE
     Dosage: DOSE: 5 MG HOLD FOR SBP LESS THAN 105 MMHG
     Route: 048
  6. ALDACTONE [Concomitant]
     Active Substance: SPIRONOLACTONE
     Indication: HYPERTENSION
     Dosage: TAKE 1 TABLET (50 MG) BY MOUTH DAILY
     Route: 065
     Dates: start: 20200124
  7. ZOLOFT [Concomitant]
     Active Substance: SERTRALINE HYDROCHLORIDE
     Dosage: TAKE 50 MG BY MOUTH DAILY.
     Route: 065
     Dates: start: 20200124
  8. VITAMIN B COMPLEX [Concomitant]
     Active Substance: CYANOCOBALAMIN\DEXPANTHENOL\NIACINAMIDE\PYRIDOXINE HYDROCHLORIDE\RIBOFLAVIN 5^-PHOSPHATE SODIUM\THIAMINE HYDROCHLORIDE\VITAMIN B COMPLEX
     Dosage: TAKE 15 MCG BY MOUTH EVERY MORNING.
     Route: 048
  9. SODIUM CHLORIDE 0.9% [Concomitant]
     Active Substance: SODIUM CHLORIDE
     Dosage: 25 ML, INTRAVENOUS, AS NEEDED, 250 ML, INTRAVENOUS, AS NEEDED?75 ML/HR (75 ML/HR), INTRAVENOUS?0-20
     Route: 065
  10. VENTOLIN HFA [Concomitant]
     Active Substance: ALBUTEROL SULFATE
     Dosage: INHALE 2 PUFFS BY MOUTH EVERY 6 (SIX) HOURS AS NEEDED FOR WHEEZING OR SHORTNESS OF BREATH
     Route: 065
  11. PLAVIX [Concomitant]
     Active Substance: CLOPIDOGREL BISULFATE
     Dosage: TAKE 75 MG BY MOUTH DAILY HOLD FOR BLEEDING OR PLATELETS LESS THAN?50,000.
     Route: 048
     Dates: start: 20200121
  12. EMLA [Concomitant]
     Active Substance: LIDOCAINE\PRILOCAINE
     Dosage: APPLY TO PORT-A-CATH AREA 30 TO 45 MINUTES PRIOR TO PORT ACCESS AS DIRECTED (TOPICAL ANESTHETIC).
     Route: 065
     Dates: start: 20200124
  13. PROTONIX [Concomitant]
     Active Substance: PANTOPRAZOLE SODIUM
     Dosage: TAKE 1 TABLET (40 MG) BY MOUTH DAILY.
     Route: 065
  14. METHYLPREDNISOLONE SODIUM SUCCINATE. [Concomitant]
     Active Substance: METHYLPREDNISOLONE SODIUM SUCCINATE
     Route: 042
  15. ATEZOLIZUMAB. [Suspect]
     Active Substance: ATEZOLIZUMAB
     Indication: B-CELL LYMPHOMA
     Dosage: ATEZOLIZUMAB 1,200 MG IN SODIUM CHLORIDE 0.9% (NS) 250 ML IVPB, INTRAVENOUS, 9 OF 11 CYCLES
     Route: 041
     Dates: start: 20190701, end: 20200106
  16. MAGNESIUM OXIDE. [Concomitant]
     Active Substance: MAGNESIUM OXIDE
     Dosage: TAKE 500 MG BY MOUTH TWICE DAILY.
     Route: 065
     Dates: start: 20200124
  17. VALACYCLOVIR [Concomitant]
     Active Substance: VALACYCLOVIR HYDROCHLORIDE
     Dosage: TAKE 1 TABLET (500 MG) BY MOUTH DAILY.
     Route: 065
  18. COPANLISIB. [Concomitant]
     Active Substance: COPANLISIB
     Route: 065
     Dates: start: 20190311
  19. HYDRALAZINE [Concomitant]
     Active Substance: HYDRALAZINE HYDROCHLORIDE
     Indication: BLOOD PRESSURE INCREASED
     Route: 065
  20. ATIVAN [Concomitant]
     Active Substance: LORAZEPAM
     Indication: NAUSEA
     Dosage: TAKE 1 TABLET (1 MG) BY MOUTH EVERY 6 (SIX) HOURS AS NEEDED
     Route: 065
     Dates: start: 20200124
  21. PROCHLORPERAZINE. [Concomitant]
     Active Substance: PROCHLORPERAZINE
     Dosage: 10 MG, INTRAVENOUS, EVERY 6 HOURS PRN,
     Route: 065
  22. LACTULOSE. [Concomitant]
     Active Substance: LACTULOSE
     Indication: CONSTIPATION
     Dosage: TAKE 15 ML BY MOUTH 2 (TWO) TIMES A DAY AS NEEDED 15-30 ML PO DAILY
     Route: 065
     Dates: start: 20200124
  23. ATEZOLIZUMAB. [Suspect]
     Active Substance: ATEZOLIZUMAB
     Dosage: ATEZOLIZUMAB 1,200 MG IN SODIUM CHLORIDE 0.9% (NS) 250 ML IVPB, INTRAVENOUS, 9 OF 11 CYCLES
     Route: 041
     Dates: start: 20200106, end: 20200106
  24. CIPROFLOXACIN. [Concomitant]
     Active Substance: CIPROFLOXACIN
     Dosage: TAKE 1 TABLET (500 MG) BY MOUTH TWICE DAILY FOR 3 DAYS
     Route: 048
     Dates: start: 20200124
  25. NORVASC [Concomitant]
     Active Substance: AMLODIPINE BESYLATE
     Indication: HYPERTENSION
     Dosage: TAKE 2.5 MG BY MOUTH DAILY
     Route: 065
     Dates: start: 20200124
  26. MELATONIN [Concomitant]
     Active Substance: MELATONIN
     Dosage: TAKE 1 TABLET (5 MG) BY MOUTH NIGHTLY AS NEEDED (INSOMNIA).
     Route: 065
  27. MORPHINE [Concomitant]
     Active Substance: MORPHINE
     Dosage: TAKE HALF A TABLET (7.5 MG) BY MOUTH EVERY 4 (FOUR) HOURS AS?NEEDED FOR PAIN.
     Route: 065
  28. DELTASONE [Concomitant]
     Active Substance: PREDNISONE
     Dosage: TAKE 5 TABLETS (50 MG) BY MOUTH DAILY FOR 5 DAYS, THEN 4?TABLETS (40 MG) DAILY FOR 5 DAYS.
     Route: 065
  29. TGR 1202 [Concomitant]
     Active Substance: UMBRALISIB
     Route: 048
     Dates: start: 20180619
  30. MICRO-K [Concomitant]
     Active Substance: POTASSIUM CHLORIDE
     Dosage: TAKE 10 MEQ BY MOUTH 3 (THREE) TIMES A DAY.
     Route: 065
     Dates: start: 20200124
  31. VALTREX [Concomitant]
     Active Substance: VALACYCLOVIR HYDROCHLORIDE
     Dosage: 500 MG TABLET
     Route: 065
     Dates: start: 20200124
  32. OTHER RESPIRATORY SYSTEM PRODUCTS [Concomitant]
     Active Substance: UNSPECIFIED INGREDIENT
     Dosage: DOSE: 100-62.5-25 MCG DSDV?INHALE 1 INHALER BY MOUTH DAILY
     Route: 065
  33. ZOFRAN [Concomitant]
     Active Substance: ONDANSETRON HYDROCHLORIDE
     Dosage: 8 MG, INTRAVENOUS, EVERY 8 HOURS PRN, DO NOT EXCEED 24 MG/DAY.?IF IV, ADMINISTER PER IV PUSH POLICY.
     Route: 042
  34. SIMETHICONE (DIMETHICONE) [Concomitant]
     Active Substance: DIMETHICONE
     Dosage: 80 MG, ORAL, 3 TIMES DAILY
     Route: 065
  35. RITUXIMAB. [Suspect]
     Active Substance: RITUXIMAB
     Indication: B-CELL LYMPHOMA
     Route: 065
     Dates: start: 20150606, end: 20150627
  36. ULTRAM [Concomitant]
     Active Substance: TRAMADOL HYDROCHLORIDE
     Indication: PAIN
     Dosage: TAKE 1 TABLET (50 MG) BY MOUTH EVERY 8 (EIGHT) HOURS AS NEEDED (PAIN)
     Route: 065
  37. DRISDOL [Concomitant]
     Active Substance: ERGOCALCIFEROL
     Dosage: TAKE 1 CAPSULE BY MOUTH WEEKLY
     Route: 065
     Dates: start: 20200124
  38. NEURONTIN [Concomitant]
     Active Substance: GABAPENTIN
     Dosage: TAKE 1 CAPSULE (100 MG) BY MOUTH 3 (THREE) TIMES A DAY.
     Route: 065
     Dates: start: 20200124
  39. PROCHLORPERAZINE. [Concomitant]
     Active Substance: PROCHLORPERAZINE
     Indication: NAUSEA
     Dosage: TAKE 1 TABLET (5 MG) BY MOUTH EVERY 6 (SIX) HOURS AS NEEDED
     Route: 065
     Dates: start: 20200124
  40. BACTRIM [Concomitant]
     Active Substance: SULFAMETHOXAZOLE\TRIMETHOPRIM
     Dosage: TAKE 1 TABLET BY MOUTH 3 (THREE) TIMES A WEEK MONDAY,?WEDNESDAY AND FRIDAY. TO PREVENT PNEUMOCYSTIC
     Route: 065
     Dates: start: 20200226
  41. TYLENOL [Concomitant]
     Active Substance: ACETAMINOPHEN
     Dosage: 650 MG, ORAL, EVERY 6 HOURS PRN, NOTIFY PRIMARY TEAM OR ON CALL?TEAM OF EACH FEVER?DO NOT EXCEED 4 G
     Route: 048
  42. HUMALOG [Concomitant]
     Active Substance: INSULIN LISPRO
     Dosage: 0-10 UNITS, SUBCUTANEOUS, 3 TIMES DAILY BEFORE MEALS,
     Route: 065

REACTIONS (2)
  - Diarrhoea [Recovered/Resolved]
  - Diarrhoea [Not Recovered/Not Resolved]

NARRATIVE: CASE EVENT DATE: 20200120
